FAERS Safety Report 8446820-8 (Version None)
Quarter: 2012Q2

REPORT INFORMATION
  Report Type: 
  Country: None (occurrence: None)
  Receive Date: 20120619
  Receipt Date: 20070330
  Transmission Date: 20120825
  Serious: No
  Sender: FDA-Public Use
  Company Number: 2007BI007190

PATIENT
  Age: 43 Year
  Sex: Female

DRUGS (2)
  1. TYSABRI [Suspect]
     Route: 042
     Dates: start: 20111028
  2. TYSABRI [Suspect]
     Indication: MULTIPLE SCLEROSIS
     Route: 042
     Dates: start: 20070326, end: 20091021

REACTIONS (9)
  - POOR QUALITY SLEEP [None]
  - NAUSEA [None]
  - INSOMNIA [None]
  - GAIT DISTURBANCE [None]
  - JOINT STIFFNESS [None]
  - DEPRESSED MOOD [None]
  - TREMOR [None]
  - FATIGUE [None]
  - HYPOAESTHESIA [None]
